FAERS Safety Report 22325774 (Version 1)
Quarter: 2023Q2

REPORT INFORMATION
  Report Type: Spontaneous
  Country: US (occurrence: US)
  Receive Date: 20230516
  Receipt Date: 20230516
  Transmission Date: 20230722
  Serious: No
  Sender: FDA-Public Use
  Company Number: US-ANIPHARMA-2023-US-006302

PATIENT
  Sex: 0

DRUGS (1)
  1. CORTICOTROPIN [Suspect]
     Active Substance: CORTICOTROPIN
     Indication: Product used for unknown indication
     Route: 058

REACTIONS (4)
  - Hypophosphataemia [Unknown]
  - Hypertension [Unknown]
  - Proteinuria [Unknown]
  - Condition aggravated [Unknown]
